FAERS Safety Report 4828579-6 (Version None)
Quarter: 2005Q4

REPORT INFORMATION
  Report Type: 
  Country: None (occurrence: None)
  Receive Date: 20051115
  Receipt Date: 20051101
  Transmission Date: 20060501
  Serious: Yes (Hospitalization, Other)
  Sender: FDA-Public Use
  Company Number: 2005SE06283

PATIENT
  Age: 31850 Day
  Sex: Male

DRUGS (11)
  1. METOPROLOL SUCCINATE [Suspect]
     Indication: CARDIAC FAILURE
     Dosage: TOTAL DAILY DOSE: 100 MG ORAL
     Route: 048
  2. PLACEBO [Suspect]
     Indication: CARDIAC FAILURE CHRONIC
     Route: 048
     Dates: start: 20040427
  3. TROMBYL [Suspect]
     Indication: ANGINA PECTORIS
     Dosage: TOTAL DAILY DOSE: 75 MG ORAL
     Route: 048
     Dates: start: 20040406
  4. COZAAR [Suspect]
     Indication: CARDIAC FAILURE
     Dosage: TOTAL DAILY DOSE: 25 MG ORAL
     Route: 048
     Dates: start: 20040406
  5. FUROSEMIDE [Suspect]
     Indication: CARDIAC FAILURE
     Dosage: TOTAL DAILY DOSE: 120 MG ORAL
     Route: 048
  6. KLOMIPRAMIN [Suspect]
     Indication: DEPRESSION
     Dosage: TOTAL DAILY DOSE: 75 MG ORAL
     Route: 048
     Dates: start: 19801030, end: 20040402
  7. GLYTRIN [Suspect]
     Indication: ANGINA PECTORIS
     Dosage: TOTAL DAILY DOSE: 0.4 MG PRN  BUCCAL
     Route: 002
     Dates: start: 20040406
  8. ALVEDON [Suspect]
     Indication: ARTHRALGIA
     Dosage: TOTAL DAILY DOSE: 500 MG PRN  PER OS
     Route: 048
  9. ALVEDON [Suspect]
     Indication: GOUT
     Dosage: TOTAL DAILY DOSE: 500 MG PRN  PER OS
     Route: 048
  10. ANAFRANIL [Concomitant]
     Indication: DEPRESSION
     Dosage: TOTAL DAILY DOSE: 100 MG ORAL
     Route: 048
     Dates: start: 20050417
  11. BETNOVAT [Concomitant]
     Indication: ECZEMA
     Route: 003
     Dates: start: 20050414

REACTIONS (2)
  - ARTHRITIS BACTERIAL [None]
  - POLYARTHRITIS [None]
